FAERS Safety Report 12509225 (Version 1)
Quarter: 2016Q2

REPORT INFORMATION
  Report Type: Spontaneous
  Country: FR (occurrence: FR)
  Receive Date: 20160629
  Receipt Date: 20160629
  Transmission Date: 20160815
  Serious: Yes (Hospitalization)
  Sender: FDA-Public Use
  Company Number: FR-VERTEX PHARMACEUTICALS-2016-003572

PATIENT
  Sex: Male

DRUGS (9)
  1. MOPRAL [Concomitant]
     Active Substance: OMEPRAZOLE SODIUM
  2. DELURSAN [Concomitant]
     Active Substance: URSODIOL
  3. UVEDOSE [Concomitant]
     Active Substance: CHOLECALCIFEROL
  4. ORKAMBI [Suspect]
     Active Substance: IVACAFTOR\LUMACAFTOR
     Indication: CYSTIC FIBROSIS
     Dosage: UNK
     Route: 048
     Dates: start: 20160321, end: 20160408
  5. SINGULAIR [Concomitant]
     Active Substance: MONTELUKAST SODIUM
  6. CREON [Concomitant]
     Active Substance: PANCRELIPASE AMYLASE\PANCRELIPASE LIPASE\PANCRELIPASE PROTEASE
  7. TOCO [Concomitant]
     Active Substance: UNSPECIFIED INGREDIENT
  8. ZITHROMAX [Concomitant]
     Active Substance: AZITHROMYCIN DIHYDRATE
  9. XYZAL [Concomitant]
     Active Substance: LEVOCETIRIZINE DIHYDROCHLORIDE

REACTIONS (2)
  - Pneumonia [Recovering/Resolving]
  - Infective pulmonary exacerbation of cystic fibrosis [Recovering/Resolving]

NARRATIVE: CASE EVENT DATE: 201604
